FAERS Safety Report 7770249-9 (Version None)
Quarter: 2011Q3

REPORT INFORMATION
  Report Type: 
  Country: None (occurrence: None)
  Receive Date: 20110922
  Receipt Date: 20101029
  Transmission Date: 20111222
  Serious: No
  Sender: FDA-Public Use
  Company Number: US-ASTRAZENECA-2010SE51426

PATIENT
  Sex: Female
  Weight: 106.6 kg

DRUGS (1)
  1. SEROQUEL [Suspect]
     Indication: BIPOLAR DISORDER
     Dosage: 700 TO 800 MG DAILY
     Route: 048

REACTIONS (4)
  - MEMORY IMPAIRMENT [None]
  - THIRST [None]
  - FATIGUE [None]
  - WEIGHT INCREASED [None]
